FAERS Safety Report 7144944-9 (Version None)
Quarter: 2010Q4

REPORT INFORMATION
  Report Type: 
  Country: None (occurrence: None)
  Receive Date: 20101123
  Receipt Date: 20101019
  Transmission Date: 20110411
  Serious: No
  Sender: FDA-Public Use
  Company Number: 020653

PATIENT
  Sex: Female

DRUGS (1)
  1. CIMZIA [Suspect]
     Indication: CROHN'S DISEASE
     Dosage: 400 MG 1X/2 WEEKS SUBCUTANEOUS
     Route: 058
     Dates: start: 20101004

REACTIONS (2)
  - DIARRHOEA [None]
  - STRESS [None]
